FAERS Safety Report 4310991-5 (Version None)
Quarter: 2004Q1

REPORT INFORMATION
  Report Type: 
  Country: None (occurrence: None)
  Receive Date: 20040302
  Receipt Date: 20040302
  Transmission Date: 20041129
  Serious: Yes (Hospitalization)
  Sender: FDA-Public Use
  Company Number: None

PATIENT
  Age: 26 Year
  Sex: Male
  Weight: 72.5755 kg

DRUGS (1)
  1. VALPROIC ACID [Suspect]
     Indication: BIPOLAR DISORDER
     Dosage: 1000 MG NIGHTLY ORAL, 750 MG MORNING ORAL
     Route: 048
     Dates: start: 19920801, end: 20040225

REACTIONS (1)
  - PANCREATITIS [None]
